FAERS Safety Report 11870752 (Version 2)
Quarter: 2016Q1

REPORT INFORMATION
  Report Type: Spontaneous
  Country: PT (occurrence: PT)
  Receive Date: 20151228
  Receipt Date: 20160218
  Transmission Date: 20160526
  Serious: Yes (Other)
  Sender: FDA-Public Use
  Company Number: PT-ACTAVIS-2015-28545

PATIENT
  Age: 33 Year
  Sex: Female
  Weight: 56 kg

DRUGS (3)
  1. DOCETAXEL ACTAVIS [Suspect]
     Active Substance: DOCETAXEL
     Dosage: 150 MG, 1/ THREE WEEKS (LOT NUMBER 15-DEC-2015: 5GL501A; LOT NUMBER 05-JAN-2016: 5MZ50B)
     Route: 042
     Dates: start: 20160105, end: 20160105
  2. PREDNISOLONA                       /00016201/ [Concomitant]
     Indication: PREMEDICATION
     Dosage: 120 MG, 1/ THREE WEEKS
     Route: 048
  3. DOCETAXEL ACTAVIS [Suspect]
     Active Substance: DOCETAXEL
     Indication: BREAST CANCER
     Dosage: 150 MG, 1/ THREE WEEKS
     Route: 042
     Dates: start: 20151215, end: 20151215

REACTIONS (7)
  - Drug hypersensitivity [Recovered/Resolved]
  - Generalised erythema [Recovered/Resolved]
  - Feeling hot [Recovered/Resolved]
  - Erythema [Recovered/Resolved]
  - Hypersensitivity [Recovered/Resolved]
  - Dyspnoea [Recovered/Resolved]
  - Dyspnoea [Recovered/Resolved]

NARRATIVE: CASE EVENT DATE: 20151215
